FAERS Safety Report 11794101 (Version 1)
Quarter: 2015Q4

REPORT INFORMATION
  Report Type: Spontaneous
  Country: JP (occurrence: JP)
  Receive Date: 20151202
  Receipt Date: 20151202
  Transmission Date: 20160305
  Serious: Yes (Other)
  Sender: FDA-Public Use
  Company Number: JP-TEVA-614267ISR

PATIENT
  Sex: Male

DRUGS (2)
  1. PACLITAXEL. [Suspect]
     Active Substance: PACLITAXEL
     Indication: THYMIC CANCER METASTATIC
     Dosage: 100 MG/M2 WEEKLY INFUSION
     Dates: start: 201406
  2. CARBOPLATIN. [Suspect]
     Active Substance: CARBOPLATIN
     Indication: THYMIC CANCER METASTATIC
     Dosage: AREA UNDER THE CURVE OF 6 EVERY 4 WEEKS
     Route: 065
     Dates: start: 201406

REACTIONS (5)
  - Alopecia [Unknown]
  - Peripheral sensory neuropathy [Unknown]
  - Arthralgia [Unknown]
  - Nausea [Unknown]
  - Haematotoxicity [Unknown]
